FAERS Safety Report 21603807 (Version 3)
Quarter: 2023Q1

REPORT INFORMATION
  Report Type: Spontaneous
  Country: US (occurrence: US)
  Receive Date: 20221116
  Receipt Date: 20230208
  Transmission Date: 20230418
  Serious: Yes (Other)
  Sender: FDA-Public Use
  Company Number: US-ORGANON-O2211USA001232

PATIENT
  Sex: Female
  Weight: 73.016 kg

DRUGS (1)
  1. NEXPLANON [Suspect]
     Active Substance: ETONOGESTREL
     Indication: Contraception
     Dosage: 1 ROD OF 68 MG IN RIGHT ARM
     Route: 059
     Dates: start: 20220715, end: 20220916

REACTIONS (3)
  - Device expulsion [Recovered/Resolved]
  - Implant site pain [Recovered/Resolved]
  - Implant site irritation [Recovered/Resolved]
